FAERS Safety Report 6413314-0 (Version None)
Quarter: 2009Q4

REPORT INFORMATION
  Report Type: 
  Country: None (occurrence: None)
  Receive Date: 20091026
  Receipt Date: 20091015
  Transmission Date: 20100525
  Serious: Yes (Congenital Anomaly)
  Sender: FDA-Public Use
  Company Number: US-AMGEN-US369456

PATIENT
  Weight: 2.58 kg

DRUGS (11)
  1. ENBREL [Suspect]
     Indication: RHEUMATOID ARTHRITIS
     Route: 058
     Dates: start: 20071020, end: 20080410
  2. VITAMIN TAB [Concomitant]
     Route: 064
     Dates: start: 20071120, end: 20080610
  3. ASCORBIC ACID [Concomitant]
     Route: 064
     Dates: start: 20071020, end: 20080519
  4. FOLIC ACID [Concomitant]
     Route: 064
     Dates: start: 20071020, end: 20071119
  5. CALCIUM [Concomitant]
     Route: 064
     Dates: start: 20071020, end: 20080519
  6. HYDROCODONE [Concomitant]
     Route: 064
     Dates: start: 20071020, end: 20080710
  7. PREDNISONE [Concomitant]
     Route: 064
     Dates: start: 20080212, end: 20080509
  8. PREDNISONE [Concomitant]
     Route: 064
     Dates: start: 20080511, end: 20080710
  9. PREDNISONE [Concomitant]
     Route: 064
     Dates: start: 20080510, end: 20080510
  10. NIFEDIPINE [Concomitant]
     Route: 064
     Dates: start: 20080606, end: 20080607
  11. BACTRIM [Concomitant]
     Route: 064
     Dates: start: 20080428, end: 20080527

REACTIONS (1)
  - POLYDACTYLY [None]
